FAERS Safety Report 8222208-X (Version None)
Quarter: 2012Q1

REPORT INFORMATION
  Report Type: 
  Country: None (occurrence: None)
  Receive Date: 20120307
  Receipt Date: 20110601
  Transmission Date: 20120608
  Serious: Yes (Disabling)
  Sender: FDA-Public Use
  Company Number: PHHY2011US42048

PATIENT
  Age: 81 Year
  Sex: Male

DRUGS (2)
  1. AFINITOR [Suspect]
     Indication: RENAL CELL CARCINOMA
     Dosage: 10 MG, QD, ORAL
     Route: 048
     Dates: start: 20110101, end: 20110401
  2. ZOMETA [Concomitant]

REACTIONS (3)
  - WEIGHT DECREASED [None]
  - PANCYTOPENIA [None]
  - FATIGUE [None]
